FAERS Safety Report 10153224 (Version 2)
Quarter: 2014Q2

REPORT INFORMATION
  Report Type: Spontaneous
  Country: SI (occurrence: SI)
  Receive Date: 20140505
  Receipt Date: 20140604
  Transmission Date: 20141212
  Serious: Yes (Other)
  Sender: FDA-Public Use
  Company Number: PHHY2014SI053340

PATIENT
  Age: 39 Year
  Sex: Female

DRUGS (1)
  1. LEKADOL [Suspect]
     Dosage: 20 DF, UNK
     Route: 048
     Dates: start: 20140428, end: 20140428

REACTIONS (1)
  - Intentional product misuse [Recovered/Resolved]
